FAERS Safety Report 25445732 (Version 1)
Quarter: 2025Q2

REPORT INFORMATION
  Report Type: Spontaneous
  Country: ES (occurrence: ES)
  Receive Date: 20250617
  Receipt Date: 20250617
  Transmission Date: 20250717
  Serious: Yes (Life-Threatening)
  Sender: TEVA
  Company Number: None

PATIENT
  Age: 55 Year
  Sex: Male

DRUGS (2)
  1. RISPERIDONE [Interacting]
     Active Substance: RISPERIDONE
     Indication: Schizophrenia
     Dosage: 1 TABLET EVERY 24 HOURS
     Route: 048
     Dates: start: 20190101, end: 20250528
  2. QUETIAPINE [Interacting]
     Active Substance: QUETIAPINE
     Indication: Schizophrenia
     Dosage: 1 EVERY 12H
     Route: 048
     Dates: start: 20190101

REACTIONS (1)
  - Neuroleptic malignant syndrome [Recovered/Resolved]

NARRATIVE: CASE EVENT DATE: 20240730
